FAERS Safety Report 24291326 (Version 1)
Quarter: 2024Q3

REPORT INFORMATION
  Report Type: Spontaneous
  Country: US (occurrence: None)
  Receive Date: 20240906
  Receipt Date: 20240906
  Transmission Date: 20241017
  Serious: No
  Sender: DOMPE FARMACEUTICI
  Company Number: US-FARMAPROD-202308-202308-2504

PATIENT
  Age: 74 Year
  Sex: Female
  Weight: 58.69 kg

DRUGS (21)
  1. OXERVATE [Suspect]
     Active Substance: CENEGERMIN-BKBJ
     Indication: Neurotrophic keratopathy
     Route: 047
     Dates: start: 20230818
  2. OXERVATE [Suspect]
     Active Substance: CENEGERMIN-BKBJ
  3. CHOLECALCIFEROL [Concomitant]
     Active Substance: CHOLECALCIFEROL
     Dosage: CRYSTALS
  4. VITAMIN D3 [Concomitant]
     Active Substance: CHOLECALCIFEROL
  5. CELECOXIB [Concomitant]
     Active Substance: CELECOXIB
  6. AMLODIPINE BESYLATE [Concomitant]
     Active Substance: AMLODIPINE BESYLATE
  7. PLAQUENIL [Concomitant]
     Active Substance: HYDROXYCHLOROQUINE SULFATE
  8. ALENDRONATE SODIUM [Concomitant]
     Active Substance: ALENDRONATE SODIUM
  9. HYDROXYCHLOROQUINE SULFATE [Concomitant]
     Active Substance: HYDROXYCHLOROQUINE SULFATE
  10. ACETAMINOPHEN [Concomitant]
     Active Substance: ACETAMINOPHEN
     Dosage: 160 MG / 5 ML
  11. OMEPRAZOLE [Concomitant]
     Active Substance: OMEPRAZOLE
  12. FLUOXETINE HYDROCHLORIDE [Concomitant]
     Active Substance: FLUOXETINE HYDROCHLORIDE
  13. LEVOTHYROXINE SODIUM [Concomitant]
     Active Substance: LEVOTHYROXINE SODIUM
  14. VITAMIN B12 [Concomitant]
     Active Substance: CYANOCOBALAMIN
  15. FOSAMAX [Concomitant]
     Active Substance: ALENDRONATE SODIUM
  16. CELEBREX [Concomitant]
     Active Substance: CELECOXIB
  17. DOXYCYCLINE HYCLATE [Concomitant]
     Active Substance: DOXYCYCLINE HYCLATE
  18. BUSPIRONE HCL [Concomitant]
     Active Substance: BUSPIRONE HYDROCHLORIDE
  19. GLUCOSAMINE-CHONDROITIN-D3 [Concomitant]
  20. ACTEMRA [Concomitant]
     Active Substance: TOCILIZUMAB
     Dosage: 200 MG / 10 ML VIAL
  21. FLUVOXAMINE MALEATE [Concomitant]
     Active Substance: FLUVOXAMINE MALEATE

REACTIONS (3)
  - Eye pain [Unknown]
  - Inappropriate schedule of product administration [Unknown]
  - Arthralgia [Unknown]

NARRATIVE: CASE EVENT DATE: 20230821
